FAERS Safety Report 16644231 (Version 1)
Quarter: 2019Q3

REPORT INFORMATION
  Report Type: Spontaneous
  Country: US (occurrence: US)
  Receive Date: 20190729
  Receipt Date: 20190729
  Transmission Date: 20191004
  Serious: No
  Sender: FDA-Public Use
  Company Number: US-TEVA-2019-US-1084109

PATIENT
  Age: 64 Year
  Sex: Female

DRUGS (3)
  1. HYALURONIDASE [Concomitant]
     Active Substance: HYALURONIDASE
     Indication: THYROID DERMATOPATHY
     Dosage: WEEKLY
     Route: 026
  2. TRIAMCINOLONE [Suspect]
     Active Substance: TRIAMCINOLONE
     Indication: THYROID DERMATOPATHY
     Dosage: 10-40MG/CC MONTHLY
     Route: 026
  3. LEVOTHYROXINE. [Concomitant]
     Active Substance: LEVOTHYROXINE
     Indication: BASEDOW^S DISEASE
     Dosage: 100 MICROGRAM DAILY;
     Route: 065

REACTIONS (2)
  - Hypertension [Unknown]
  - Osteopenia [Unknown]
